FAERS Safety Report 4761418-0 (Version None)
Quarter: 2005Q3

REPORT INFORMATION
  Report Type: 
  Country: None (occurrence: None)
  Receive Date: 20050901
  Receipt Date: 20050818
  Transmission Date: 20060218
  Serious: Yes (Death, Hospitalization)
  Sender: FDA-Public Use
  Company Number: 2005116995

PATIENT
  Age: 83 Year
  Sex: Male

DRUGS (4)
  1. PREGABALIN (PREGABALIN) [Suspect]
     Indication: POST HERPETIC NEURALGIA
     Dosage: 150 MG (75 MG, 2 IN 1 D), ORAL
     Route: 048
     Dates: start: 20050806, end: 20050807
  2. ENALAPRIL MALEATE W/HYDROCHLOROTIAZIDE (ENALAPRIL MALEATE, HYDROCHLORO [Concomitant]
  3. ACETYLSALICYLIC ACID SRT [Concomitant]
  4. FENOTEROL W/IPRATROPIUM (FENOTEROL, IPRATROPIUM) [Concomitant]

REACTIONS (7)
  - CARDIAC FAILURE [None]
  - CONDITION AGGRAVATED [None]
  - DIZZINESS [None]
  - DYSPNOEA [None]
  - LOSS OF CONSCIOUSNESS [None]
  - PNEUMONIA [None]
  - RESPIRATORY FAILURE [None]
